FAERS Safety Report 4354913-X (Version None)
Quarter: 2004Q2

REPORT INFORMATION
  Report Type: 
  Country: None (occurrence: None)
  Receive Date: 20040505
  Receipt Date: 20040429
  Transmission Date: 20050107
  Serious: Yes (Other)
  Sender: FDA-Public Use
  Company Number: CIO04011336

PATIENT
  Sex: Male

DRUGS (1)
  1. CREST W/ FLUORIDE [Suspect]
     Dosage: 1 APPLIC, UNK FREQ, INTRAORAL
     Route: 048

REACTIONS (1)
  - ANAPHYLACTIC SHOCK [None]
